FAERS Safety Report 10185106 (Version 3)
Quarter: 2014Q4

REPORT INFORMATION
  Report Type: Spontaneous
  Country: US (occurrence: US)
  Receive Date: 20140521
  Receipt Date: 20141114
  Transmission Date: 20150528
  Serious: Yes (Life-Threatening, Hospitalization, Other)
  Sender: FDA-Public Use
  Company Number: US-PFIZER INC-2014137290

PATIENT
  Age: 23 Year
  Sex: Female

DRUGS (3)
  1. TRAMADOL HCL [Suspect]
     Active Substance: TRAMADOL HYDROCHLORIDE
     Indication: BACK PAIN
     Dosage: 1.5 G, UNK
     Route: 048
  2. METAXALONE. [Suspect]
     Active Substance: METAXALONE
     Indication: BACK PAIN
     Dosage: 12 G, UNK
     Route: 048
  3. NAPROXEN SODIUM. [Suspect]
     Active Substance: NAPROXEN SODIUM
     Indication: BACK PAIN
     Dosage: UNK
     Route: 048

REACTIONS (18)
  - Hyperthermia [Recovered/Resolved]
  - Tachycardia [Recovered/Resolved]
  - Hyperhidrosis [Unknown]
  - Muscle rigidity [Recovered/Resolved]
  - Mydriasis [Unknown]
  - Clonus [Recovered/Resolved]
  - Suicidal behaviour [Recovered/Resolved]
  - Autonomic nervous system imbalance [Unknown]
  - Hypotonia [Unknown]
  - Hypoxia [Unknown]
  - Blood prolactin increased [Unknown]
  - Somnolence [Unknown]
  - Miosis [Unknown]
  - Status epilepticus [Recovered/Resolved]
  - Serotonin syndrome [Recovered/Resolved]
  - Respiratory depression [Unknown]
  - Unresponsive to stimuli [Recovered/Resolved]
  - Overdose [Unknown]
